FAERS Safety Report 12652431 (Version 3)
Quarter: 2016Q3

REPORT INFORMATION
  Report Type: Spontaneous
  Country: US (occurrence: US)
  Receive Date: 20160815
  Receipt Date: 20160902
  Transmission Date: 20161109
  Serious: No
  Sender: FDA-Public Use
  Company Number: US-PFIZER INC-2016379952

PATIENT
  Age: 61 Year
  Sex: Female
  Weight: 84.35 kg

DRUGS (19)
  1. CELEBREX [Suspect]
     Active Substance: CELECOXIB
     Indication: INFLAMMATION
     Dosage: UNK
  2. LYRICA [Suspect]
     Active Substance: PREGABALIN
     Indication: DIABETIC NEUROPATHY
     Dosage: 50 MG, 3X/DAY
     Route: 048
  3. ATORVASTATIN CALCIUM. [Suspect]
     Active Substance: ATORVASTATIN CALCIUM
     Dosage: UNK
  4. DICLOFENAC SODIUM. [Suspect]
     Active Substance: DICLOFENAC SODIUM
     Dosage: UNK
  5. TIZANIDINE HCL [Concomitant]
     Active Substance: TIZANIDINE HYDROCHLORIDE
     Dosage: UNK UNK, AS NEEDED [2 MG; 1-2 AS NEEDED]
  6. SKELAXIN [Suspect]
     Active Substance: METAXALONE
     Indication: PARALYSIS
     Dosage: UNK
  7. GLIPIZIDE. [Suspect]
     Active Substance: GLIPIZIDE
     Dosage: 10 MG, 2X/DAY
  8. ROPINIROLE. [Concomitant]
     Active Substance: ROPINIROLE
     Dosage: 2 MG, 1X/DAY [1 MG; 2 AT NIGHT]
  9. BUPROPION. [Concomitant]
     Active Substance: BUPROPION
     Dosage: 150 MG, 2X/DAY
  10. NEURONTIN [Suspect]
     Active Substance: GABAPENTIN
     Dosage: UNK
  11. PROMETHAZINE HCL [Suspect]
     Active Substance: PROMETHAZINE HYDROCHLORIDE
     Dosage: 25 MG, AS NEEDED
  12. METFORMIN HCL [Concomitant]
     Active Substance: METFORMIN HYDROCHLORIDE
     Dosage: 500 MG, 2X/DAY
  13. LISINOPRIL HCTZ [Concomitant]
     Active Substance: HYDROCHLOROTHIAZIDE\LISINOPRIL
     Dosage: UNK UNK, 1X/DAY [LISINOPRIL-20]/ [HYDROCHLOROTHIAZIDE-25]
  14. TOUJEO [Concomitant]
     Active Substance: INSULIN GLARGINE
     Dosage: 40 IU, 1X/DAY
  15. ADVIL [Suspect]
     Active Substance: IBUPROFEN
     Indication: INFLAMMATION
     Dosage: UNK
  16. DILTIAZEM HCL [Suspect]
     Active Substance: DILTIAZEM HYDROCHLORIDE
     Dosage: 180 MG, 1X/DAY
  17. LYRICA [Suspect]
     Active Substance: PREGABALIN
     Dosage: 300 MG, DAILY
     Route: 048
  18. MOTRIN [Suspect]
     Active Substance: IBUPROFEN
     Indication: INFLAMMATION
  19. HYDROCODONE/ACETAMINOPHEN [Concomitant]
     Active Substance: ACETAMINOPHEN\HYDROCODONE
     Dosage: UNK UNK, 3X/DAY [HYDROCODONE BITARTRATE-5]/[PARACETAMOL-325]

REACTIONS (6)
  - Night sweats [Unknown]
  - Asthenia [Unknown]
  - Dizziness [Unknown]
  - Drug ineffective [Unknown]
  - Nausea [Unknown]
  - Insomnia [Unknown]
